FAERS Safety Report 7104748-X (Version None)
Quarter: 2010Q4

REPORT INFORMATION
  Report Type: 
  Country: None (occurrence: None)
  Receive Date: 20101116
  Receipt Date: 20101101
  Transmission Date: 20110411
  Serious: Yes (Hospitalization)
  Sender: FDA-Public Use
  Company Number: TW-JNJFOC-20101104922

PATIENT
  Sex: Female
  Weight: 38.3 kg

DRUGS (4)
  1. RISPERDAL [Suspect]
     Indication: ILL-DEFINED DISORDER
     Dosage: HOUR OF SLEEP
     Route: 048
  2. ZOLOFT [Suspect]
     Indication: ILL-DEFINED DISORDER
     Dosage: DOSAGE FORM 50 MG TABLET. HOUR OF SLEEP
     Route: 048
  3. AMLODIPINE [Suspect]
     Indication: ILL-DEFINED DISORDER
     Route: 065
  4. REPAGLINIDE [Suspect]
     Indication: ILL-DEFINED DISORDER
     Route: 065

REACTIONS (2)
  - ALTERED STATE OF CONSCIOUSNESS [None]
  - LOSS OF CONSCIOUSNESS [None]
